FAERS Safety Report 6256159-7 (Version None)
Quarter: 2009Q3

REPORT INFORMATION
  Report Type: 
  Country: None (occurrence: None)
  Receive Date: 20090706
  Receipt Date: 20090623
  Transmission Date: 20100115
  Serious: Yes (Other)
  Sender: FDA-Public Use
  Company Number: PHHY2009IT26281

PATIENT

DRUGS (3)
  1. CLOZAPINE [Suspect]
     Indication: SCHIZOPHRENIA
     Dosage: 25 MG/DAY
  2. CLOZAPINE [Suspect]
     Dosage: 300 MG/DAY
  3. CLOZAPINE [Suspect]
     Dosage: 250-600 MG/DAY

REACTIONS (1)
  - ELECTROCARDIOGRAM QT PROLONGED [None]
